FAERS Safety Report 16490008 (Version 1)
Quarter: 2019Q2

REPORT INFORMATION
  Report Type: Spontaneous
  Country: US (occurrence: US)
  Receive Date: 20190628
  Receipt Date: 20190628
  Transmission Date: 20190711
  Serious: No
  Sender: FDA-Public Use
  Company Number: US-ACCORD-090911

PATIENT
  Age: 73 Year
  Sex: Female

DRUGS (1)
  1. CLONAZEPAM ACCORD [Suspect]
     Active Substance: CLONAZEPAM
     Indication: PRODUCT USED FOR UNKNOWN INDICATION
     Dosage: STRENGTH: 2 MG?DOSE: 2 MG ONCE A DAY AT NIGHT
     Route: 048
     Dates: start: 2018

REACTIONS (2)
  - Muscular weakness [Recovered/Resolved]
  - Wrong technique in product usage process [Unknown]
